FAERS Safety Report 17058909 (Version 3)
Quarter: 2020Q1

REPORT INFORMATION
  Report Type: Spontaneous
  Country: US (occurrence: US)
  Receive Date: 20191121
  Receipt Date: 20200110
  Transmission Date: 20200409
  Serious: No
  Sender: FDA-Public Use
  Company Number: US-PFIZER INC-2019501294

PATIENT
  Age: 12 Year
  Sex: Female
  Weight: 32.66 kg

DRUGS (3)
  1. GENOTROPIN [Suspect]
     Active Substance: SOMATROPIN
     Indication: ATTENTION DEFICIT/HYPERACTIVITY DISORDER
  2. GENOTROPIN [Suspect]
     Active Substance: SOMATROPIN
     Indication: GROWTH HORMONE DEFICIENCY
  3. GENOTROPIN [Suspect]
     Active Substance: SOMATROPIN
     Indication: ANXIETY
     Dosage: 1.6 MG, 1X/DAY
     Dates: start: 20191105

REACTIONS (1)
  - Pain [Not Recovered/Not Resolved]

NARRATIVE: CASE EVENT DATE: 20191105
